FAERS Safety Report 5236932-4 (Version None)
Quarter: 2007Q1

REPORT INFORMATION
  Report Type: 
  Country: None (occurrence: None)
  Receive Date: 20070213
  Receipt Date: 20070207
  Transmission Date: 20070707
  Serious: Yes (Death)
  Sender: FDA-Public Use
  Company Number: JP-AVENTIS-200710356JP

PATIENT
  Age: 84 Year
  Sex: Male
  Weight: 48 kg

DRUGS (11)
  1. TAXOTERE [Suspect]
     Route: 041
     Dates: start: 20070118, end: 20070118
  2. OXYCONTIN [Suspect]
     Indication: PAIN
     Route: 048
     Dates: start: 20070117
  3. OPSO [Suspect]
     Indication: PAIN
     Dosage: DOSE: 5MG/UNIT
     Route: 048
     Dates: start: 20070105
  4. VITAMEDIN                          /00274301/ [Concomitant]
  5. CLARITHROMYCIN [Concomitant]
  6. GASTER [Concomitant]
  7. NAIXAN                             /00256201/ [Concomitant]
  8. RINDERON                           /00008501/ [Concomitant]
  9. BIOFERMIN R [Concomitant]
  10. ADONA                              /00056903/ [Concomitant]
     Dosage: DOSE: 3 TABLETS
  11. ALLOID G [Concomitant]

REACTIONS (1)
  - ILEUS [None]
